FAERS Safety Report 4993525-1 (Version None)
Quarter: 2006Q2

REPORT INFORMATION
  Report Type: 
  Country: None (occurrence: None)
  Receive Date: 20060503
  Receipt Date: 20060503
  Transmission Date: 20061013
  Serious: Yes (Other)
  Sender: FDA-Public Use
  Company Number: None

PATIENT
  Sex: Female
  Weight: 107.5932 kg

DRUGS (2)
  1. GLYBURIDE [Suspect]
     Indication: DIABETES MELLITUS NON-INSULIN-DEPENDENT
  2. METFORMIN [Suspect]

REACTIONS (2)
  - DIABETES MELLITUS INADEQUATE CONTROL [None]
  - THERAPY NON-RESPONDER [None]
